FAERS Safety Report 15417647 (Version 1)
Quarter: 2018Q3

REPORT INFORMATION
  Report Type: Report from Study
  Country: CA (occurrence: CA)
  Receive Date: 20180924
  Receipt Date: 20180924
  Transmission Date: 20181010
  Serious: Yes (Life-Threatening, Hospitalization, Other)
  Sender: FDA-Public Use
  Company Number: PHHY2018CA046536

PATIENT
  Age: 51 Year
  Sex: Female

DRUGS (1)
  1. VOTRIENT [Suspect]
     Active Substance: PAZOPANIB HYDROCHLORIDE
     Indication: METASTATIC RENAL CELL CARCINOMA
     Dosage: 800 MG, UNK
     Route: 048
     Dates: start: 20180630

REACTIONS (10)
  - Cystitis [Unknown]
  - Liver disorder [Unknown]
  - Inflammation [Unknown]
  - Yellow skin [Unknown]
  - Pain in extremity [Unknown]
  - Liver injury [Unknown]
  - Gait disturbance [Unknown]
  - Malaise [Unknown]
  - Chromaturia [Unknown]
  - Eye colour change [Unknown]

NARRATIVE: CASE EVENT DATE: 20180703
